FAERS Safety Report 25324095 (Version 1)
Quarter: 2025Q2

REPORT INFORMATION
  Report Type: Spontaneous
  Country: US (occurrence: US)
  Receive Date: 20250516
  Receipt Date: 20250516
  Transmission Date: 20250717
  Serious: No
  Sender: BAUSCH AND LOMB
  Company Number: US-BAUSCHBL-2025BNL008399

PATIENT

DRUGS (1)
  1. MIEBO [Suspect]
     Active Substance: PERFLUOROHEXYLOCTANE
     Indication: Product used for unknown indication
     Route: 065

REACTIONS (3)
  - Vision blurred [Unknown]
  - Drug ineffective [Unknown]
  - Insurance issue [Unknown]
